FAERS Safety Report 5037755-1 (Version None)
Quarter: 2006Q2

REPORT INFORMATION
  Report Type: 
  Country: None (occurrence: None)
  Receive Date: 20060601
  Receipt Date: 20060208
  Transmission Date: 20061013
  Serious: No
  Sender: FDA-Public Use
  Company Number: 2006PV008358

PATIENT
  Age: 63 Year
  Sex: Female
  Weight: 107.9561 kg

DRUGS (5)
  1. BYETTA [Suspect]
     Indication: DIABETES MELLITUS NON-INSULIN-DEPENDENT
     Dosage: 5 MCG; BID; SC
     Route: 058
     Dates: start: 20060203, end: 20060203
  2. ACTOS [Concomitant]
  3. INDERAL [Concomitant]
  4. CLONIDINE HCL [Concomitant]
  5. LOTREL [Concomitant]

REACTIONS (5)
  - ANOREXIA [None]
  - BLOOD GLUCOSE DECREASED [None]
  - BLOOD PRESSURE INCREASED [None]
  - FLUSHING [None]
  - VOMITING [None]
